FAERS Safety Report 13620787 (Version 2)
Quarter: 2017Q2

REPORT INFORMATION
  Report Type: Report from Study
  Country: CN (occurrence: CN)
  Receive Date: 20170607
  Receipt Date: 20170607
  Transmission Date: 20170830
  Serious: Yes (Hospitalization)
  Sender: FDA-Public Use
  Company Number: PHHY2017CN081778

PATIENT
  Age: 38 Year
  Sex: Female

DRUGS (2)
  1. GLIVEC [Suspect]
     Active Substance: IMATINIB MESYLATE
     Indication: C-KIT GENE MUTATION
     Dosage: 400 MG, QD
     Route: 065
     Dates: start: 201412
  2. IMATINIB [Suspect]
     Active Substance: IMATINIB
     Indication: PRODUCT USED FOR UNKNOWN INDICATION
     Route: 065

REACTIONS (11)
  - Pulmonary mass [Recovering/Resolving]
  - Metastases to lung [Unknown]
  - Neoplasm skin [Unknown]
  - Fatigue [Unknown]
  - Metastatic malignant melanoma [Unknown]
  - Nasal cavity cancer [Unknown]
  - Axillary mass [Unknown]
  - Metastases to central nervous system [Unknown]
  - Hepatic steatosis [Unknown]
  - Cough [Unknown]
  - Pyrexia [Unknown]

NARRATIVE: CASE EVENT DATE: 20160228
